FAERS Safety Report 24182591 (Version 2)
Quarter: 2024Q3

REPORT INFORMATION
  Report Type: Spontaneous
  Country: US (occurrence: None)
  Receive Date: 20240807
  Receipt Date: 20240829
  Transmission Date: 20241017
  Serious: Yes (Hospitalization, Other)
  Sender: ASTRAZENECA
  Company Number: 2024A173765

PATIENT
  Sex: Female

DRUGS (1)
  1. TRUQAP [Suspect]
     Active Substance: CAPIVASERTIB
     Indication: Breast cancer metastatic
     Dosage: 800 MG BID 4 DAYS ON/3 DAYS OFF
     Route: 048

REACTIONS (3)
  - Renal failure [Recovered/Resolved]
  - Diabetic ketoacidosis [Recovered/Resolved]
  - Medication error [Recovered/Resolved]
